FAERS Safety Report 15397293 (Version 1)
Quarter: 2018Q3

REPORT INFORMATION
  Report Type: Spontaneous
  Country: GB (occurrence: GB)
  Receive Date: 20180918
  Receipt Date: 20180918
  Transmission Date: 20181010
  Serious: Yes (Other)
  Sender: FDA-Public Use
  Company Number: GB-PFIZER INC-2018372182

PATIENT
  Age: 81 Year
  Sex: Male
  Weight: 71 kg

DRUGS (17)
  1. DOXYCYCLINE MONOHYDRATE [Suspect]
     Active Substance: DOXYCYCLINE
     Dosage: 100 MG, UNK
     Dates: start: 20180817
  2. LAXIDO [Concomitant]
     Active Substance: POLYETHYLENE GLYCOL 3350\POTASSIUM CHLORIDE\SODIUM BICARBONATE\SODIUM CHLORIDE
     Dosage: 1 DF, AS NEEDED (CONTENTS OF A SACHET)
     Dates: start: 20180504
  3. SALBUTAMOL [Concomitant]
     Active Substance: ALBUTEROL
     Dosage: 2 DF, AS NEEDED (PUFFS UP TO FOUR TIMES DAILY)
     Route: 055
     Dates: start: 20180504
  4. CIPROFLOXACIN. [Concomitant]
     Active Substance: CIPROFLOXACIN
     Indication: LOWER RESPIRATORY TRACT INFECTION
     Dosage: 2 DF, 1X/DAY
     Dates: start: 20180504
  5. CALCI?D [Concomitant]
     Dosage: 1 DF, 1X/DAY
     Dates: start: 20180614
  6. RELVAR ELLIPTA [Concomitant]
     Active Substance: FLUTICASONE FUROATE\VILANTEROL TRIFENATATE
     Indication: CHRONIC OBSTRUCTIVE PULMONARY DISEASE
     Dosage: 1 DF, 1X/DAY (PUFF)
     Dates: start: 20180504
  7. OLIVE OIL [Concomitant]
     Active Substance: OLIVE OIL
     Dosage: 9 GTT, 1X/DAY (INTO EACH EAR)
     Route: 001
     Dates: start: 20180504
  8. LEVOTHYROXINE. [Concomitant]
     Active Substance: LEVOTHYROXINE
     Indication: THYROID DISORDER
     Dosage: 1 DF, 1X/DAY
     Dates: start: 20180504
  9. AZITHROMYCIN ANHYDROUS. [Concomitant]
     Active Substance: AZITHROMYCIN ANHYDROUS
     Dosage: 1 DF, ALTERNATE DAY (FOR THE CHEST AS ADVISED)
     Dates: start: 20180504
  10. RANITIDINE. [Concomitant]
     Active Substance: RANITIDINE
     Dosage: 2 DF, 1X/DAY
     Dates: start: 20180504
  11. INCRUSE ELLIPTA [Concomitant]
     Active Substance: UMECLIDINIUM BROMIDE
     Indication: CHRONIC OBSTRUCTIVE PULMONARY DISEASE
     Dosage: 1 DF, 1X/DAY (PUFF)
     Route: 055
     Dates: start: 20180504
  12. CAVERJECT [Concomitant]
     Active Substance: ALPROSTADIL
     Dosage: UNK, AS NEEDED
     Dates: start: 20171018
  13. CARBOCISTEINE [Concomitant]
     Active Substance: CARBOCYSTEINE
     Dosage: 4 DF, 1X/DAY
     Dates: start: 20180504
  14. FLUTICASONE FUROATE [Concomitant]
     Active Substance: FLUTICASONE FUROATE
     Dosage: 2 DF, 1X/DAY (IN EACH NOSTRIL)
     Route: 045
     Dates: start: 20180504
  15. AVAMYS [Concomitant]
     Active Substance: FLUTICASONE FUROATE
     Dosage: 1 DF, 1X/DAY
     Dates: start: 20180808
  16. COLECALCIFEROL [Concomitant]
     Active Substance: CHOLECALCIFEROL
     Indication: BONE DISORDER
     Dosage: 1 DF, 1X/DAY
     Dates: start: 20180504, end: 20180614
  17. PREDNISOLONE. [Concomitant]
     Active Substance: PREDNISOLONE
     Dosage: 40 MG, 1X/DAY (FOR 7?14 DAYS)
     Dates: start: 20180504

REACTIONS (2)
  - Palpitations [Recovered/Resolved]
  - Rash [Unknown]

NARRATIVE: CASE EVENT DATE: 20180817
